FAERS Safety Report 5320295-X (Version None)
Quarter: 2007Q2

REPORT INFORMATION
  Report Type: 
  Country: None (occurrence: None)
  Receive Date: 20070503
  Receipt Date: 20070503
  Transmission Date: 20071010
  Serious: Yes (Other)
  Sender: FDA-Public Use
  Company Number: None

PATIENT
  Sex: Male

DRUGS (6)
  1. REVLIMID [Suspect]
     Indication: MYELODYSPLASTIC SYNDROME
     Dosage: 5MG DAILY PO
     Route: 048
  2. HYDROCHLOROTHIAZIDE [Concomitant]
  3. WARFARIN [Concomitant]
  4. TERAZOSIN HCL [Concomitant]
  5. FLEXERIL [Concomitant]
  6. LOVASTATIN [Concomitant]

REACTIONS (1)
  - NEUTROPHIL COUNT DECREASED [None]
